FAERS Safety Report 8468836-8 (Version None)
Quarter: 2012Q2

REPORT INFORMATION
  Report Type: 
  Country: None (occurrence: None)
  Receive Date: 20120626
  Receipt Date: 20120621
  Transmission Date: 20120825
  Serious: Yes (Hospitalization, Other)
  Sender: FDA-Public Use
  Company Number: JP-ABBOTT-11P-087-0697488-00

PATIENT
  Sex: Female
  Weight: 45.7 kg

DRUGS (8)
  1. HUMIRA [Suspect]
     Indication: RHEUMATOID ARTHRITIS
     Route: 058
     Dates: start: 20091030, end: 20101224
  2. PREDNISONE TAB [Suspect]
     Dates: start: 20110304
  3. PROGRAF [Suspect]
     Route: 048
     Dates: start: 20091225, end: 20101224
  4. PREDNISONE TAB [Suspect]
     Indication: RHEUMATOID ARTHRITIS
     Dates: start: 20091022, end: 20100930
  5. PREDNISONE TAB [Suspect]
     Dates: start: 20101001, end: 20110303
  6. PROGRAF [Suspect]
     Indication: RHEUMATOID ARTHRITIS
     Route: 048
     Dates: start: 20080725, end: 20091224
  7. SODIUM RISEDRONATE HYDRATE [Concomitant]
     Indication: PRODUCT USED FOR UNKNOWN INDICATION
     Dates: start: 20100820
  8. RABEPRAZOLE SODIUM [Concomitant]
     Indication: PROPHYLAXIS AGAINST GASTROINTESTINAL ULCER
     Dates: start: 20100122

REACTIONS (5)
  - PLEURAL EFFUSION [None]
  - LUNG NEOPLASM [None]
  - PNEUMONIA CRYPTOCOCCAL [None]
  - CHEST DISCOMFORT [None]
  - LUNG DISORDER [None]
